FAERS Safety Report 7548375-9 (Version None)
Quarter: 2011Q2

REPORT INFORMATION
  Report Type: 
  Country: None (occurrence: None)
  Receive Date: 20110524
  Receipt Date: 20110202
  Transmission Date: 20111010
  Serious: No
  Sender: FDA-Public Use
  Company Number: 026776

PATIENT
  Sex: Female
  Weight: 54 kg

DRUGS (8)
  1. ESTRADIOL [Concomitant]
  2. PROMETRIUM [Concomitant]
  3. RESTASIS [Concomitant]
  4. OMEPRAZOLE [Concomitant]
  5. MAGNESIUM [Concomitant]
  6. CIMZIA [Suspect]
     Indication: RHEUMATOID ARTHRITIS
     Dosage: (400 MG 1X/2 WEEKS SUBCUTANEOUS)
     Route: 058
     Dates: start: 20101231
  7. TRAZODONE HCL [Concomitant]
  8. XANAX [Concomitant]

REACTIONS (5)
  - CONSTIPATION [None]
  - BLOOD PRESSURE INCREASED [None]
  - PAIN IN EXTREMITY [None]
  - INJECTION SITE HAEMATOMA [None]
  - OEDEMA PERIPHERAL [None]
